FAERS Safety Report 16733640 (Version 3)
Quarter: 2020Q2

REPORT INFORMATION
  Report Type: Spontaneous
  Country: IT (occurrence: IT)
  Receive Date: 20190823
  Receipt Date: 20200618
  Transmission Date: 20200713
  Serious: Yes (Other)
  Sender: FDA-Public Use
  Company Number: IT-AUROBINDO-AUR-APL-2019-055466

PATIENT
  Sex: Male

DRUGS (2)
  1. LEVOFLOXACIN FILMCOATED TABLET [Suspect]
     Active Substance: LEVOFLOXACIN
     Indication: OSTEOMYELITIS
     Dosage: 500 MILLIGRAM, ONCE A DAY
     Route: 048
  2. LEVOFLOXACIN FILMCOATED TABLET [Suspect]
     Active Substance: LEVOFLOXACIN
     Dosage: 750 UNK
     Route: 065

REACTIONS (9)
  - Tachyarrhythmia [Unknown]
  - Neuritis [Unknown]
  - Tendon disorder [Unknown]
  - Pain [Unknown]
  - Tendon rupture [Not Recovered/Not Resolved]
  - Myalgia [Unknown]
  - Neuropathic muscular atrophy [Unknown]
  - Myopathy [Unknown]
  - Muscle atrophy [Unknown]

NARRATIVE: CASE EVENT DATE: 201812
